FAERS Safety Report 16530202 (Version 1)
Quarter: 2019Q3

REPORT INFORMATION
  Report Type: Spontaneous
  Country: TR (occurrence: TR)
  Receive Date: 20190704
  Receipt Date: 20190704
  Transmission Date: 20191004
  Serious: Yes (Hospitalization, Other)
  Sender: FDA-Public Use
  Company Number: TR-LUPIN PHARMACEUTICALS INC.-2019-04030

PATIENT
  Age: 16 Year
  Sex: Female
  Weight: 44 kg

DRUGS (2)
  1. SERTRALINE [Suspect]
     Active Substance: SERTRALINE HYDROCHLORIDE
     Indication: SUICIDE ATTEMPT
     Dosage: UNK
     Route: 065
  2. CAPTOPRIL. [Suspect]
     Active Substance: CAPTOPRIL
     Indication: SUICIDE ATTEMPT
     Dosage: 9 DOSAGE FORM
     Route: 065

REACTIONS (3)
  - Echinococciasis [Unknown]
  - Hypertension [Unknown]
  - Toxicity to various agents [Unknown]
